FAERS Safety Report 8358181-3 (Version None)
Quarter: 2012Q2

REPORT INFORMATION
  Report Type: 
  Country: None (occurrence: None)
  Receive Date: 20120514
  Receipt Date: 20120504
  Transmission Date: 20120825
  Serious: Yes (Hospitalization)
  Sender: FDA-Public Use
  Company Number: US-GLAXOSMITHKLINE-A0952214A

PATIENT
  Age: 55 Year
  Sex: Male
  Weight: 106.4 kg

DRUGS (17)
  1. INVESTIGATIONAL DRUG [Suspect]
     Indication: HEPATIC ENCEPHALOPATHY
     Route: 048
     Dates: start: 20110921, end: 20111007
  2. CITALOPRAM HYDROBROMIDE [Concomitant]
  3. LITHIUM CARBONATE [Concomitant]
  4. CALCIUM CARBONATE [Concomitant]
  5. RIFAXIMIN [Concomitant]
  6. HYDROXINE [Concomitant]
  7. LEVOTHYROXINE SODIUM [Concomitant]
  8. ARIPIPRAZOLE [Concomitant]
     Dates: end: 20111008
  9. AMITRIPTYLINE HCL [Concomitant]
     Dates: end: 20111008
  10. ZINC SULFATE [Concomitant]
  11. CIPROFLOXACIN [Concomitant]
  12. LACTULOSE [Concomitant]
  13. POTASSIUM CHLORIDE [Concomitant]
  14. COMBIVENT [Concomitant]
  15. ROPINIROLE [Suspect]
     Indication: RESTLESS LEGS SYNDROME
     Route: 048
     Dates: end: 20111008
  16. PROPRANOLOL [Concomitant]
  17. FUROSEMIDE [Concomitant]

REACTIONS (1)
  - ACUTE PSYCHOSIS [None]
